FAERS Safety Report 9748918 (Version 1)
Quarter: 2013Q4

REPORT INFORMATION
  Report Type: Report from Study
  Country: US (occurrence: US)
  Receive Date: 20131212
  Receipt Date: 20131212
  Transmission Date: 20140711
  Serious: Yes (Other)
  Sender: FDA-Public Use
  Company Number: US-BAYER-2013-150568

PATIENT
  Age: 71 Year
  Sex: Female

DRUGS (3)
  1. ASPIRIN [Suspect]
     Dosage: 325 MG, QD
  2. CLOPIDOGREL [Suspect]
     Indication: THROMBOSIS PROPHYLAXIS
     Dosage: 600 MG, ONCE DURING THE OPERATIVE PROCEDURE
  3. CLOPIDOGREL [Suspect]
     Indication: THROMBOSIS PROPHYLAXIS
     Dosage: 75 MG, QD

REACTIONS (2)
  - Haemorrhage intracranial [Recovered/Resolved]
  - Device occlusion [None]
